FAERS Safety Report 25661197 (Version 1)
Quarter: 2025Q3

REPORT INFORMATION
  Report Type: Report from Study
  Country: US (occurrence: US)
  Receive Date: 20250808
  Receipt Date: 20250808
  Transmission Date: 20251020
  Serious: No
  Sender: MALLINCKRODT
  Company Number: US-MALLINCKRODT-MNK202404058

PATIENT
  Sex: Female

DRUGS (1)
  1. CORTICOTROPIN [Suspect]
     Active Substance: CORTICOTROPIN
     Indication: Dry eye

REACTIONS (8)
  - Eye pain [Unknown]
  - Vision blurred [Recovered/Resolved]
  - Astigmatism [Not Recovered/Not Resolved]
  - Condition aggravated [Unknown]
  - Foreign body sensation in eyes [Not Recovered/Not Resolved]
  - Ocular discomfort [Recovering/Resolving]
  - Asthenia [Unknown]
  - Product dose omission issue [Unknown]
